FAERS Safety Report 18265813 (Version 30)
Quarter: 2025Q1

REPORT INFORMATION
  Report Type: Report from Study
  Country: US (occurrence: US)
  Receive Date: 20200915
  Receipt Date: 20250326
  Transmission Date: 20250409
  Serious: Yes (Hospitalization, Other)
  Sender: TAKEDA
  Company Number: US-SHIRE-US202029809

PATIENT
  Age: 15 Year
  Sex: Female
  Weight: 35 kg

DRUGS (38)
  1. HUMAN IMMUNOGLOBULIN G [Suspect]
     Active Substance: HUMAN IMMUNOGLOBULIN G
     Indication: Adjustment disorder
     Dosage: 4 GRAM, 1/WEEK
     Dates: start: 20181024
  2. HUMAN IMMUNOGLOBULIN G [Suspect]
     Active Substance: HUMAN IMMUNOGLOBULIN G
     Indication: Rett syndrome
     Dosage: 5 GRAM, 1/WEEK
  3. HUMAN IMMUNOGLOBULIN G [Suspect]
     Active Substance: HUMAN IMMUNOGLOBULIN G
     Dosage: 4 GRAM, 1/WEEK
     Dates: start: 20181121
  4. HUMAN IMMUNOGLOBULIN G [Suspect]
     Active Substance: HUMAN IMMUNOGLOBULIN G
     Dosage: 6 GRAM, 1/WEEK
  5. IBUPROFEN [Suspect]
     Active Substance: IBUPROFEN
     Indication: Product used for unknown indication
  6. TROFINETIDE [Suspect]
     Active Substance: TROFINETIDE
     Indication: Product used for unknown indication
  7. ALBUTEROL SULFATE [Concomitant]
     Active Substance: ALBUTEROL SULFATE
  8. VITAMIN D3 [Concomitant]
     Active Substance: CHOLECALCIFEROL
  9. DIPHENHYDRAMINE [Concomitant]
     Active Substance: DIPHENHYDRAMINE
  10. TOBRAMYCIN [Concomitant]
     Active Substance: TOBRAMYCIN
  11. BACLOFEN [Concomitant]
     Active Substance: BACLOFEN
  12. EPINEPHRINE [Concomitant]
     Active Substance: EPINEPHRINE
  13. CARAFATE [Concomitant]
     Active Substance: SUCRALFATE
  14. SIMETHICONE (DIMETHICONE) [Concomitant]
     Active Substance: DIMETHICONE
  15. FLUTICASONE PROPIONATE [Concomitant]
     Active Substance: FLUTICASONE PROPIONATE
  16. NITROGLYCERIN [Concomitant]
     Active Substance: NITROGLYCERIN
  17. PREVACID [Concomitant]
     Active Substance: LANSOPRAZOLE
  18. Mct oil [Concomitant]
  19. GABAPENTIN [Concomitant]
     Active Substance: GABAPENTIN
  20. PEPCID [Concomitant]
     Active Substance: FAMOTIDINE
  21. OXYGEN [Concomitant]
     Active Substance: OXYGEN
  22. LAMOTRIGINE [Concomitant]
     Active Substance: LAMOTRIGINE
  23. LEVOCARNITINE [Concomitant]
     Active Substance: LEVOCARNITINE
  24. COENZYME Q10 [Concomitant]
     Active Substance: DIETARY SUPPLEMENT\UBIDECARENONE
  25. LAMICTAL [Concomitant]
     Active Substance: LAMOTRIGINE
  26. VITAMIN C [Concomitant]
     Active Substance: ASCORBIC ACID
  27. PULMOZYME [Concomitant]
     Active Substance: DORNASE ALFA
  28. CAYSTON [Concomitant]
     Active Substance: AZTREONAM
  29. FAMOTIDINE [Concomitant]
     Active Substance: FAMOTIDINE
  30. LIDOCAINE [Concomitant]
     Active Substance: LIDOCAINE
  31. DIASTAT ACUDIAL [Concomitant]
     Active Substance: DIAZEPAM
  32. MILK OF MAGNESIA [Concomitant]
     Active Substance: MAGNESIUM HYDROXIDE
  33. DIAZEPAM [Concomitant]
     Active Substance: DIAZEPAM
  34. ACETYLCYSTEINE [Concomitant]
     Active Substance: ACETYLCYSTEINE
  35. FLONASE [Concomitant]
     Active Substance: FLUTICASONE PROPIONATE
  36. Poly vi sol [Concomitant]
  37. SINEMET [Concomitant]
     Active Substance: CARBIDOPA\LEVODOPA
  38. VITAMIN B [Concomitant]
     Active Substance: VITAMIN B

REACTIONS (28)
  - Nasopharyngitis [Unknown]
  - Complication associated with device [Unknown]
  - Pseudomonas infection [Unknown]
  - Pneumonia [Unknown]
  - Infective pulmonary exacerbation of cystic fibrosis [Unknown]
  - Ileus [Unknown]
  - Seizure [Unknown]
  - Fall [Unknown]
  - Head injury [Unknown]
  - Copper deficiency [Unknown]
  - COVID-19 [Recovering/Resolving]
  - Infection [Unknown]
  - Hypersomnia [Unknown]
  - Secretion discharge [Unknown]
  - Insurance issue [Unknown]
  - Eye discharge [Unknown]
  - Gastrointestinal disorder [Unknown]
  - Lip discolouration [Unknown]
  - Product use issue [Unknown]
  - Product use in unapproved indication [Unknown]
  - Urinary tract infection [Unknown]
  - Feeling abnormal [Unknown]
  - Abdominal discomfort [Unknown]
  - Rash [Unknown]
  - Nausea [Unknown]
  - Diarrhoea [Unknown]
  - Headache [Unknown]
  - Fatigue [Unknown]

NARRATIVE: CASE EVENT DATE: 20181024
